FAERS Safety Report 9154151 (Version 4)
Quarter: 2013Q2

REPORT INFORMATION
  Report Type: Report from Study
  Country: NL (occurrence: NL)
  Receive Date: 20130311
  Receipt Date: 20130423
  Transmission Date: 20140414
  Serious: Yes (Hospitalization)
  Sender: FDA-Public Use
  Company Number: NL-JNJFOC-20121011749

PATIENT
  Age: 62 Year
  Sex: Female
  Weight: 72.3 kg

DRUGS (18)
  1. REMICADE [Suspect]
     Indication: COLITIS ULCERATIVE
     Route: 042
     Dates: start: 20100920
  2. REMICADE [Suspect]
     Indication: COLITIS ULCERATIVE
     Route: 042
     Dates: start: 20120306, end: 20120306
  3. PARACETAMOL [Concomitant]
     Route: 065
  4. ESOMEPRAZOLE [Concomitant]
     Route: 065
  5. ALPRAZOLAM [Concomitant]
     Dosage: 0, 25 MG
     Route: 065
  6. XYLOMETAZOLINE [Concomitant]
     Route: 065
  7. NISITA (SALINE) [Concomitant]
     Route: 065
  8. ZOPICLONE [Concomitant]
     Route: 065
  9. MESALAZINE [Concomitant]
     Route: 065
  10. CIPROFLOXACIN [Concomitant]
     Route: 065
  11. CEFTRIAXONE [Concomitant]
     Route: 065
  12. FRAXIPARINE [Concomitant]
  13. NATRIUM LEVOTHYROXINE [Concomitant]
     Route: 065
  14. VIMOVO [Concomitant]
     Route: 065
  15. THYRAX [Concomitant]
     Route: 065
  16. OLSALAZINE [Concomitant]
     Route: 065
  17. TRAMADOL RETARD [Concomitant]
     Route: 065
  18. TRAMADOL RETARD [Concomitant]
     Route: 065

REACTIONS (8)
  - Colitis ulcerative [Recovered/Resolved]
  - Pneumonia pneumococcal [Recovered/Resolved]
  - Leukopenia [Unknown]
  - Renal impairment [Unknown]
  - Atrial fibrillation [Unknown]
  - Otitis media [Recovered/Resolved]
  - Phlebitis [Unknown]
  - Respiratory failure [Recovered/Resolved]
